FAERS Safety Report 8345338-0 (Version None)
Quarter: 2012Q2

REPORT INFORMATION
  Report Type: 
  Country: None (occurrence: None)
  Receive Date: 20120508
  Receipt Date: 20120502
  Transmission Date: 20120825
  Serious: Yes (Hospitalization, Other)
  Sender: FDA-Public Use
  Company Number: US-ELI_LILLY_AND_COMPANY-US201205001677

PATIENT
  Sex: Male

DRUGS (5)
  1. HUMULIN R [Suspect]
     Indication: DIABETES MELLITUS
     Dosage: 6 U, EACH MORNING
     Dates: start: 20100101
  2. NORVASC [Concomitant]
  3. HUMULIN R [Suspect]
     Dosage: 8 U, IN THE AFTERNOON
     Dates: start: 20100101
  4. HUMULIN R [Suspect]
     Dosage: 6 U, EACH EVENING
     Dates: start: 20100101
  5. HUMULIN R [Suspect]
     Dosage: UNK, SLIDING SCALE PRN
     Dates: start: 20100101

REACTIONS (5)
  - INFECTION [None]
  - CELLULITIS [None]
  - MYOCARDIAL INFARCTION [None]
  - SKIN GRAFT [None]
  - HYPERSENSITIVITY [None]
